FAERS Safety Report 6115098-2 (Version None)
Quarter: 2009Q1

REPORT INFORMATION
  Report Type: 
  Country: None (occurrence: None)
  Receive Date: 20090313
  Receipt Date: 20090305
  Transmission Date: 20090719
  Serious: Yes (Other)
  Sender: FDA-Public Use
  Company Number: B0564808A

PATIENT
  Age: 79 Year
  Sex: Female

DRUGS (1)
  1. PAROXETINE HCL [Suspect]
     Route: 065

REACTIONS (10)
  - AGITATION [None]
  - BODY TEMPERATURE INCREASED [None]
  - CHILLS [None]
  - CONFUSIONAL STATE [None]
  - DECREASED APPETITE [None]
  - DELIRIUM [None]
  - DEPRESSED MOOD [None]
  - MENTAL STATUS CHANGES [None]
  - SEROTONIN SYNDROME [None]
  - URINARY INCONTINENCE [None]
